FAERS Safety Report 16920244 (Version 1)
Quarter: 2019Q4

REPORT INFORMATION
  Report Type: Spontaneous
  Country: TR (occurrence: TR)
  Receive Date: 20191015
  Receipt Date: 20191015
  Transmission Date: 20200122
  Serious: Yes (Death, Hospitalization)
  Sender: FDA-Public Use
  Company Number: NVSC2019TR001972

PATIENT
  Age: 47 Year
  Sex: Female

DRUGS (1)
  1. PAZOPANIB [Suspect]
     Active Substance: PAZOPANIB
     Indication: SOFT TISSUE SARCOMA
     Dosage: 800 MG, QD
     Route: 065
     Dates: start: 201306

REACTIONS (6)
  - Fatigue [Fatal]
  - Oedema peripheral [Fatal]
  - Sinus tachycardia [Fatal]
  - Cardiac failure [Fatal]
  - Palpitations [Fatal]
  - Dyspnoea exertional [Fatal]
